FAERS Safety Report 5163249-9 (Version None)
Quarter: 2006Q4

REPORT INFORMATION
  Report Type: 
  Country: None (occurrence: None)
  Receive Date: 20061204
  Receipt Date: 20061122
  Transmission Date: 20070319
  Serious: Yes (Death, Hospitalization)
  Sender: FDA-Public Use
  Company Number: PHEH2006US14560

PATIENT
  Age: 36 Year
  Sex: Male

DRUGS (4)
  1. PHENYTOIN SODIUM CAP [Concomitant]
  2. KETOROLAC TROMETHAMINE [Concomitant]
  3. CLOZARIL [Suspect]
     Indication: SCHIZOPHRENIA
     Dates: start: 20060101, end: 20060101
  4. CLOZAPINE [Suspect]
     Indication: SCHIZOPHRENIA
     Dates: start: 20020403, end: 20060714

REACTIONS (7)
  - BRAIN OEDEMA [None]
  - BRAIN OPERATION [None]
  - BRAIN TUMOUR OPERATION [None]
  - DEPRESSED LEVEL OF CONSCIOUSNESS [None]
  - POST PROCEDURAL COMPLICATION [None]
  - POST PROCEDURAL HAEMATOMA [None]
  - SOMNOLENCE [None]
